FAERS Safety Report 6053667-9 (Version None)
Quarter: 2009Q1

REPORT INFORMATION
  Report Type: 
  Country: None (occurrence: None)
  Receive Date: 20090127
  Receipt Date: 20080125
  Transmission Date: 20090719
  Serious: No
  Sender: FDA-Public Use
  Company Number: US-TEVA-166854USA

PATIENT
  Age: 47 Year

DRUGS (1)
  1. COPAXONE [Suspect]
     Indication: MULTIPLE SCLEROSIS
     Route: 058
     Dates: end: 20050101

REACTIONS (4)
  - INJECTION SITE DISCOMFORT [None]
  - INJECTION SITE INFLAMMATION [None]
  - INJECTION SITE REACTION [None]
  - INJECTION SITE SWELLING [None]
